FAERS Safety Report 5533842-X (Version None)
Quarter: 2007Q4

REPORT INFORMATION
  Report Type: 
  Country: None (occurrence: None)
  Receive Date: 20071129
  Receipt Date: 20071119
  Transmission Date: 20080405
  Serious: Yes (Other)
  Sender: FDA-Public Use
  Company Number: CHNY2007NL03804

PATIENT
  Age: 80 Year
  Sex: Male

DRUGS (1)
  1. LAMISIL [Suspect]
     Indication: ONYCHOMYCOSIS
     Dosage: 1 DF, ONCE/SINGLE, TOPICAL
     Route: 061
     Dates: start: 20071001

REACTIONS (3)
  - ATROPHY [None]
  - NAIL DISCOLOURATION [None]
  - NAIL GROWTH ABNORMAL [None]
